FAERS Safety Report 4443073-2 (Version None)
Quarter: 2004Q3

REPORT INFORMATION
  Report Type: 
  Country: None (occurrence: None)
  Receive Date: 20040903
  Receipt Date: 20040602
  Transmission Date: 20050211
  Serious: Yes (Other)
  Sender: FDA-Public Use
  Company Number: 2004UW11483

PATIENT
  Age: 69 Year
  Sex: Female
  Weight: 72.1219 kg

DRUGS (4)
  1. CRESTOR [Suspect]
     Indication: BLOOD CHOLESTEROL INCREASED
     Dosage: 10 MG QD PO
     Route: 048
     Dates: start: 20040301
  2. ZIAC [Concomitant]
  3. ATACAND [Concomitant]
  4. ASPIRIN [Concomitant]

REACTIONS (5)
  - FATIGUE [None]
  - HYPOAESTHESIA [None]
  - INFLUENZA [None]
  - MYALGIA [None]
  - NECK PAIN [None]
